FAERS Safety Report 21864985 (Version 2)
Quarter: 2023Q2

REPORT INFORMATION
  Report Type: Report from Study
  Country: US (occurrence: US)
  Receive Date: 20230116
  Receipt Date: 20230406
  Transmission Date: 20230721
  Serious: No
  Sender: FDA-Public Use
  Company Number: US-ABBVIE-4241032

PATIENT
  Age: 67 Year
  Sex: Male

DRUGS (2)
  1. HUMIRA [Suspect]
     Active Substance: ADALIMUMAB
     Indication: Psoriasis
     Route: 058
  2. HUMIRA [Suspect]
     Active Substance: ADALIMUMAB
     Route: 058

REACTIONS (4)
  - Skin disorder [Not Recovered/Not Resolved]
  - Psoriasis [Recovering/Resolving]
  - Road traffic accident [Recovering/Resolving]
  - Scar [Not Recovered/Not Resolved]

NARRATIVE: CASE EVENT DATE: 20221101
